FAERS Safety Report 16089230 (Version 1)
Quarter: 2019Q1

REPORT INFORMATION
  Report Type: Spontaneous
  Country: US (occurrence: US)
  Receive Date: 20190215
  Receipt Date: 20190215
  Transmission Date: 20190418
  Serious: No
  Sender: FDA-Public Use
  Company Number: None

PATIENT
  Age: 38 Year
  Sex: Female

DRUGS (1)
  1. TREMFYA [Suspect]
     Active Substance: GUSELKUMAB
     Indication: PSORIASIS
     Dosage: ?          OTHER ROUTE:DAY 28 THEN EVERY 8 WEEKS AS DIRECTED?
     Route: 058
     Dates: start: 201809

REACTIONS (2)
  - Abdominal pain upper [None]
  - Migraine [None]
